FAERS Safety Report 6045727-3 (Version None)
Quarter: 2009Q1

REPORT INFORMATION
  Report Type: 
  Country: None (occurrence: None)
  Receive Date: 20090121
  Receipt Date: 20090113
  Transmission Date: 20090719
  Serious: Yes (Hospitalization, Other)
  Sender: FDA-Public Use
  Company Number: US-ELI_LILLY_AND_COMPANY-US200901002077

PATIENT
  Sex: Male

DRUGS (14)
  1. HUMALOG MIX 75/25 [Suspect]
     Dates: end: 20090107
  2. HUMALOG MIX 75/25 [Suspect]
     Dates: start: 20090107
  3. OS-CAL [Concomitant]
     Indication: MINERAL SUPPLEMENTATION
     Dosage: UNK, 2/D
  4. VITAMIN D [Concomitant]
     Dosage: 400 U, EACH MORNING
  5. GLUCOSAMINE [Concomitant]
     Dosage: UNK, EACH MORNING
  6. MULTI-VITAMIN [Concomitant]
     Dosage: UNK, EACH MORNING
  7. LOVAZA [Concomitant]
     Dosage: UNK, EACH MORNING
  8. VITAMIN B-12 [Concomitant]
     Dosage: UNK, EACH MORNING
  9. LISINOPRIL [Concomitant]
     Dosage: 10 MG, DAILY (1/D)
  10. DETROL [Concomitant]
  11. HYDROCHLOROTHIAZIDE [Concomitant]
     Dosage: 12.5 MG, DAILY (1/D)
  12. METOPROLOL TARTRATE [Concomitant]
     Dosage: 50 MG, 2/D
  13. SENOKOT [Concomitant]
     Indication: LAXATIVE SUPPORTIVE CARE
     Dosage: UNK, DAILY (1/D)
  14. FUROSEMIDE [Concomitant]
     Dosage: 20 MG, EACH MORNING

REACTIONS (12)
  - AMNESIA [None]
  - APHASIA [None]
  - BLOOD CHOLESTEROL INCREASED [None]
  - BLOOD GLUCOSE DECREASED [None]
  - BLOOD GLUCOSE INCREASED [None]
  - CEREBRAL HAEMORRHAGE [None]
  - DYSPHAGIA [None]
  - EYE DISORDER [None]
  - FALL [None]
  - GAIT DISTURBANCE [None]
  - HYPERTENSION [None]
  - PARKINSON'S DISEASE [None]
